FAERS Safety Report 11886622 (Version 1)
Quarter: 2016Q1

REPORT INFORMATION
  Report Type: Spontaneous
  Country: CA (occurrence: CA)
  Receive Date: 20160104
  Receipt Date: 20160104
  Transmission Date: 20160526
  Serious: Yes (Other)
  Sender: FDA-Public Use
  Company Number: CA-GE HEALTHCARE MEDICAL DIAGNOSTICS-OMPQ-PR-1512S-3218

PATIENT
  Age: 56 Year
  Sex: Female

DRUGS (2)
  1. OMNIPAQUE [Suspect]
     Active Substance: IOHEXOL
     Indication: ANAEMIA
     Route: 042
     Dates: start: 20151224, end: 20151224
  2. OMNIPAQUE [Suspect]
     Active Substance: IOHEXOL
     Indication: DIAGNOSTIC PROCEDURE

REACTIONS (2)
  - Chest discomfort [Unknown]
  - Urticaria [Unknown]

NARRATIVE: CASE EVENT DATE: 20151224
